FAERS Safety Report 8389119-0 (Version None)
Quarter: 2012Q2

REPORT INFORMATION
  Report Type: 
  Country: None (occurrence: None)
  Receive Date: 20120528
  Receipt Date: 20120522
  Transmission Date: 20120825
  Serious: Yes (Disabling, Other)
  Sender: FDA-Public Use
  Company Number: PHHY2012BR044968

PATIENT
  Sex: Female

DRUGS (2)
  1. ZOLEDRONOC ACID [Suspect]
     Dosage: 5MG/100ML
     Route: 042
  2. ZOLEDRONOC ACID [Suspect]
     Dosage: 5MG/100ML
     Route: 042

REACTIONS (1)
  - ABASIA [None]
